FAERS Safety Report 24810090 (Version 1)
Quarter: 2025Q1

REPORT INFORMATION
  Report Type: Report from Study
  Country: IT (occurrence: IT)
  Receive Date: 20250106
  Receipt Date: 20250106
  Transmission Date: 20250408
  Serious: Yes (Death, Congenital Anomaly, Other)
  Sender: UCB
  Company Number: IT-UCBSA-2024067620

PATIENT

DRUGS (1)
  1. LEVETIRACETAM [Suspect]
     Active Substance: LEVETIRACETAM
     Indication: Epilepsy
     Route: 064

REACTIONS (2)
  - Congenital anomaly [Fatal]
  - Maternal exposure during pregnancy [Unknown]
